FAERS Safety Report 18579974 (Version 1)
Quarter: 2020Q4

REPORT INFORMATION
  Report Type: Spontaneous
  Country: US (occurrence: US)
  Receive Date: 20201204
  Receipt Date: 20201204
  Transmission Date: 20210114
  Serious: No
  Sender: FDA-Public Use
  Company Number: US-SA-2020SA346701

PATIENT

DRUGS (1)
  1. DUPIXENT [Suspect]
     Active Substance: DUPILUMAB
     Dosage: 300 MG, OTHER
     Route: 058
     Dates: start: 202010

REACTIONS (4)
  - Oral mucosal blistering [Unknown]
  - Gingival blister [Unknown]
  - Gingival pain [Unknown]
  - Oral pain [Unknown]

NARRATIVE: CASE EVENT DATE: 202012
